FAERS Safety Report 10026882 (Version 4)
Quarter: 2014Q2

REPORT INFORMATION
  Report Type: Spontaneous
  Country: IT (occurrence: IT)
  Receive Date: 20140321
  Receipt Date: 20140415
  Transmission Date: 20141212
  Serious: Yes (Hospitalization)
  Sender: FDA-Public Use
  Company Number: PHHY2014IT015768

PATIENT
  Age: 27 Year
  Sex: Female

DRUGS (5)
  1. ENTUMIN [Suspect]
     Indication: DRUG ABUSE
     Dosage: 30 DRP, ONCE/SINGLE
     Route: 048
     Dates: start: 20140130, end: 20140130
  2. OLANZAPINE [Suspect]
     Indication: DRUG ABUSE
     Dosage: 11 G, ONCE/SINGLE
     Route: 048
     Dates: start: 20140130, end: 20140130
  3. XANAX [Concomitant]
     Dosage: UNK UKN, UNK
  4. AMISULPRIDE [Concomitant]
     Dosage: UNK UKN, UNK
  5. SERTRALINE [Concomitant]
     Dosage: UNK UKN, UNK

REACTIONS (3)
  - Asthenia [Recovered/Resolved]
  - Dyspnoea [Recovered/Resolved]
  - Drug abuse [Recovered/Resolved]
